FAERS Safety Report 6370777-7 (Version None)
Quarter: 2009Q3

REPORT INFORMATION
  Report Type: 
  Country: None (occurrence: None)
  Receive Date: 20090923
  Receipt Date: 20070917
  Transmission Date: 20100115
  Serious: Yes (Other)
  Sender: FDA-Public Use
  Company Number: US-ASTRAZENECA-2006UW23975

PATIENT
  Age: 16512 Day
  Sex: Female
  Weight: 113.5 kg

DRUGS (11)
  1. SEROQUEL [Suspect]
     Indication: ANXIETY
     Route: 048
     Dates: start: 20000622
  2. SEROQUEL [Suspect]
     Indication: DEPRESSION
     Route: 048
     Dates: start: 20000622
  3. HALDOL [Concomitant]
  4. RISPERDALE [Concomitant]
  5. ZYPREXA [Concomitant]
  6. XANAX [Concomitant]
     Dosage: 1 MG BID AND 2 MG AT HS
     Dates: start: 20000829
  7. LIPITOR [Concomitant]
     Dates: start: 20000829
  8. NEURONTIN [Concomitant]
     Dates: start: 20010404
  9. PAXIL [Concomitant]
     Dates: start: 20010402
  10. PROZAC [Concomitant]
     Dates: start: 20010625
  11. PULMICORT [Concomitant]
     Dosage: TWO PUFFS BID
     Dates: start: 20010625

REACTIONS (2)
  - DIABETES MELLITUS [None]
  - TYPE 2 DIABETES MELLITUS [None]
